FAERS Safety Report 9252445 (Version 1)
Quarter: 2013Q2

REPORT INFORMATION
  Report Type: Spontaneous
  Country: US (occurrence: US)
  Receive Date: 20130424
  Receipt Date: 20130424
  Transmission Date: 20140414
  Serious: Yes (Hospitalization)
  Sender: FDA-Public Use
  Company Number: US-B.I. PHARMACEUTICALS,INC./RIDGEFIELD-2013-BI-10060BP

PATIENT
  Age: 69 Year
  Sex: Female
  Weight: 96 kg

DRUGS (6)
  1. TRADJENTA [Suspect]
     Indication: DIABETES MELLITUS
     Dosage: 5 MG
     Route: 048
     Dates: start: 201303, end: 20130403
  2. GLIPIZIDE [Concomitant]
     Indication: DIABETES MELLITUS
     Dosage: 20 MG
     Route: 048
  3. FENOFIBRATE [Concomitant]
     Indication: BLOOD CHOLESTEROL INCREASED
     Route: 048
  4. LEVOTHYROXINE [Concomitant]
     Indication: THYROIDECTOMY
     Dosage: 0.175 MG
     Route: 048
  5. LANTUS INSULIN [Concomitant]
     Indication: DIABETES MELLITUS
     Dosage: 60 U
     Route: 058
  6. XANAX [Concomitant]
     Indication: ANXIETY
     Dosage: 1 MG
     Route: 048

REACTIONS (3)
  - Localised infection [Not Recovered/Not Resolved]
  - Nightmare [Recovered/Resolved]
  - Blood glucose abnormal [Not Recovered/Not Resolved]
